FAERS Safety Report 6104425-8 (Version None)
Quarter: 2009Q1

REPORT INFORMATION
  Report Type: 
  Country: None (occurrence: None)
  Receive Date: 20090227
  Receipt Date: 20080722
  Transmission Date: 20090719
  Serious: Yes (Hospitalization)
  Sender: FDA-Public Use
  Company Number: RB-2644-2008

PATIENT
  Age: 1 Day
  Sex: Female

DRUGS (3)
  1. SUBOXONE [Suspect]
     Indication: DRUG DEPENDENCE
     Dosage: 32 MG TRANSPLACENTAL
     Route: 064
     Dates: start: 20080123, end: 20080123
  2. SUBUTEX [Suspect]
     Indication: DRUG DEPENDENCE
     Dosage: 10 MG TRANSPLACENTAL, 12 MG TRANSPLACENTAL
     Route: 064
     Dates: start: 20080124, end: 20080213
  3. SUBUTEX [Suspect]
     Indication: DRUG DEPENDENCE
     Dosage: 10 MG TRANSPLACENTAL, 12 MG TRANSPLACENTAL
     Route: 064
     Dates: start: 20080214, end: 20080717

REACTIONS (1)
  - DRUG WITHDRAWAL SYNDROME NEONATAL [None]
